FAERS Safety Report 13854669 (Version 2)
Quarter: 2017Q3

REPORT INFORMATION
  Report Type: Spontaneous
  Country: US (occurrence: US)
  Receive Date: 20170810
  Receipt Date: 20170817
  Transmission Date: 20171127
  Serious: Yes (Hospitalization, Other)
  Sender: FDA-Public Use
  Company Number: US-PFIZER INC-2017339394

PATIENT
  Age: 64 Year
  Sex: Female

DRUGS (6)
  1. POTASSIUM CHLORIDE. [Suspect]
     Active Substance: POTASSIUM CHLORIDE
     Dosage: 20 MEQ, UNK (ER)
  2. METOPROLOL SUCCINATE. [Suspect]
     Active Substance: METOPROLOL SUCCINATE
     Dosage: 50 MG, UNK (ER)
  3. BUMETANIDE. [Suspect]
     Active Substance: BUMETANIDE
     Dosage: 1 MG, UNK
  4. GABAPENTIN. [Suspect]
     Active Substance: GABAPENTIN
     Dosage: 600 MG, UNK
  5. ENBREL [Suspect]
     Active Substance: ETANERCEPT
     Dosage: UNK
  6. MORPHINE SULFATE. [Suspect]
     Active Substance: MORPHINE SULFATE
     Dosage: 15 MG, UNK

REACTIONS (23)
  - Arthralgia [Unknown]
  - Haemoglobin decreased [Unknown]
  - Splenic infarction [Unknown]
  - Pruritus [Unknown]
  - Haematocrit decreased [Unknown]
  - Mean cell volume decreased [Unknown]
  - Neutrophil count increased [Unknown]
  - Pain in extremity [Unknown]
  - Insomnia [Unknown]
  - Sciatica [Unknown]
  - Blood creatinine increased [Unknown]
  - Red cell distribution width increased [Unknown]
  - Mean cell haemoglobin concentration decreased [Unknown]
  - Nausea [Unknown]
  - Thrombosis [Unknown]
  - Pain [Unknown]
  - Back pain [Unknown]
  - Glomerular filtration rate decreased [Unknown]
  - White blood cell count increased [Unknown]
  - Lymphocyte count increased [Unknown]
  - Vomiting [Unknown]
  - Monocyte count increased [Unknown]
  - C-reactive protein increased [Unknown]
